FAERS Safety Report 12476574 (Version 2)
Quarter: 2016Q3

REPORT INFORMATION
  Report Type: Report from Study
  Country: JP (occurrence: JP)
  Receive Date: 20160617
  Receipt Date: 20160721
  Transmission Date: 20161109
  Serious: Yes (Hospitalization)
  Sender: FDA-Public Use
  Company Number: JP-TEVA-668335ISR

PATIENT
  Age: 6 Decade
  Sex: Male

DRUGS (3)
  1. WARFARIN [Suspect]
     Active Substance: WARFARIN
     Dosage: 3 MILLIGRAM DAILY;
     Route: 065
  2. WARFARIN [Interacting]
     Active Substance: WARFARIN
     Dosage: 1.5 MILLIGRAM DAILY;
     Route: 065
  3. GIMERACIL, OTERACIL, TEGAFUR (S1) [Interacting]
     Active Substance: GIMERACIL\OTERACIL\TEGAFUR
     Indication: GASTRIC CANCER
     Route: 065

REACTIONS (5)
  - Drug interaction [Recovering/Resolving]
  - International normalised ratio increased [Recovered/Resolved]
  - Faeces discoloured [Recovered/Resolved]
  - Prothrombin time prolonged [Recovered/Resolved]
  - Anaemia [Recovering/Resolving]
